FAERS Safety Report 4752865-1 (Version None)
Quarter: 2005Q3

REPORT INFORMATION
  Report Type: 
  Country: None (occurrence: None)
  Receive Date: 20050714
  Receipt Date: 20041213
  Transmission Date: 20060218
  Serious: Yes (Death, Hospitalization)
  Sender: FDA-Public Use
  Company Number: 200413922US

PATIENT
  Age: 61 Year
  Sex: Female

DRUGS (23)
  1. TAXOTERE [Suspect]
     Indication: NON-SMALL CELL LUNG CANCER METASTATIC
     Dosage: 80 MG IV
     Route: 042
     Dates: start: 20040205
  2. TAXOTERE [Suspect]
     Indication: NON-SMALL CELL LUNG CANCER METASTATIC
     Dates: end: 20030801
  3. PROCRIT [Suspect]
     Indication: ANAEMIA
     Dosage: 40000 U QW SC
     Dates: start: 20030423, end: 20040114
  4. MIRACLE MOUTHWASH [Concomitant]
  5. CISPLATIN [Concomitant]
  6. IRESSA [Concomitant]
  7. PIOGLITAZONE HCL [Concomitant]
  8. MONTELUKAST SODIUM [Concomitant]
  9. ZYRTEC [Concomitant]
  10. QUININE SULFATE [Concomitant]
  11. LEVAQUIN [Concomitant]
  12. IPRATROPIUM BROMIDE, SALBUTAMOL SULFATE (COMBIVENT) [Concomitant]
  13. POLYSACCHARIDE-IRON COMPLEX (NU-IRON) [Concomitant]
  14. METOPROLOL SUCCINATE [Concomitant]
  15. ACETYLSALICYLIC ACID SRT [Concomitant]
  16. CHLORDIAZEPOXIDE HYDRCHLORIDE (LIBRIUIM TABS) [Concomitant]
  17. POTASSIUM CHLORIDE [Concomitant]
  18. PSEUDOEPHEDRINE SULFATE (GUIAFED PD) [Concomitant]
  19. ZANTAC [Concomitant]
  20. ESTROGENS CONJUGATED (PREMARIN) [Concomitant]
  21. FLUTICASONE PROPIONATE, SALMETEROL XINAFOATE (ADVAIR) [Concomitant]
  22. FOLIC ACID, PYRIDOXINE, CYANOCOBALAMIN (FOLTX) [Concomitant]
  23. VITAMIN B COMPLEX CAP [Concomitant]

REACTIONS (6)
  - ANAEMIA [None]
  - ATELECTASIS [None]
  - DYSPNOEA [None]
  - LOBAR PNEUMONIA [None]
  - NON-SMALL CELL LUNG CANCER [None]
  - RESPIRATORY FAILURE [None]
